FAERS Safety Report 6101466-1 (Version None)
Quarter: 2009Q1

REPORT INFORMATION
  Report Type: 
  Country: None (occurrence: None)
  Receive Date: 20090227
  Receipt Date: 20081028
  Transmission Date: 20090719
  Serious: Yes (Disabling)
  Sender: FDA-Public Use
  Company Number: 2008S1019610

PATIENT
  Age: 24 Year
  Sex: Male
  Weight: 70.3075 kg

DRUGS (1)
  1. AMNESTEEM [Suspect]
     Indication: ACNE
     Dosage: 40 MG;TWICE A DAY;ORAL
     Route: 048
     Dates: end: 20080828

REACTIONS (1)
  - EPISTAXIS [None]
